FAERS Safety Report 5509736-2 (Version None)
Quarter: 2007Q4

REPORT INFORMATION
  Report Type: 
  Country: None (occurrence: None)
  Receive Date: 20071107
  Receipt Date: 20071107
  Transmission Date: 20080405
  Serious: No
  Sender: FDA-Public Use
  Company Number: None

PATIENT
  Sex: Male
  Weight: 68.0396 kg

DRUGS (1)
  1. SANCTURA [Suspect]
     Indication: URINARY INCONTINENCE
     Dosage: ONE PILL ONCE PER DAY PO
     Route: 048
     Dates: start: 20071019, end: 20071031

REACTIONS (8)
  - ABDOMINAL PAIN UPPER [None]
  - DYSPEPSIA [None]
  - DYSPHAGIA [None]
  - ERUCTATION [None]
  - GASTROOESOPHAGEAL REFLUX DISEASE [None]
  - INSOMNIA [None]
  - OESOPHAGEAL PAIN [None]
  - PAIN [None]
